FAERS Safety Report 20407875 (Version 1)
Quarter: 2022Q1

REPORT INFORMATION
  Report Type: Spontaneous
  Country: US (occurrence: US)
  Receive Date: 20220201
  Receipt Date: 20220201
  Transmission Date: 20220423
  Serious: No
  Sender: FDA-Public Use
  Company Number: US-LUPIN PHARMACEUTICALS INC.-2022-01115

PATIENT
  Age: 82 Year
  Sex: Female

DRUGS (1)
  1. LEVETIRACETAM [Suspect]
     Active Substance: LEVETIRACETAM
     Indication: Encephalopathy
     Dosage: UNK-1000 AND 1500 MG GIVEN EVERY 12 H
     Route: 042

REACTIONS (2)
  - Erythema [Unknown]
  - Injection site reaction [Unknown]
